FAERS Safety Report 16991450 (Version 6)
Quarter: 2020Q1

REPORT INFORMATION
  Report Type: Report from Study
  Country: US (occurrence: US)
  Receive Date: 20191104
  Receipt Date: 20200113
  Transmission Date: 20200409
  Serious: Yes (Hospitalization)
  Sender: FDA-Public Use
  Company Number: US-ACTELION-A-NJ2019-195086

PATIENT
  Sex: Female
  Weight: 93.88 kg

DRUGS (5)
  1. UPTRAVI [Suspect]
     Active Substance: SELEXIPAG
     Dosage: 400 MCG AM/200 MCG PM
     Route: 048
  2. SILDENAFIL CITRATE. [Concomitant]
     Active Substance: SILDENAFIL CITRATE
  3. ELIQUIS [Concomitant]
     Active Substance: APIXABAN
  4. UPTRAVI [Suspect]
     Active Substance: SELEXIPAG
     Indication: PULMONARY ARTERIAL HYPERTENSION
     Dosage: 600 MCG, BID
     Route: 048
     Dates: end: 201912
  5. UPTRAVI [Suspect]
     Active Substance: SELEXIPAG
     Dosage: 400 MCG, BID
     Route: 048

REACTIONS (24)
  - Swelling [Unknown]
  - Abdominal pain [Unknown]
  - Nasopharyngitis [Unknown]
  - Rash [Unknown]
  - Abdominal pain upper [Not Recovered/Not Resolved]
  - Back pain [Unknown]
  - Abdominal distension [Unknown]
  - Weight decreased [Unknown]
  - Hospitalisation [Unknown]
  - Urinary tract infection [Unknown]
  - Flatulence [Unknown]
  - Product dose omission [Unknown]
  - Decreased appetite [Unknown]
  - Peripheral swelling [Unknown]
  - Adverse event [Unknown]
  - Flank pain [Unknown]
  - Abdominal discomfort [Unknown]
  - Weight increased [Unknown]
  - Influenza [Unknown]
  - Fall [Unknown]
  - Gait disturbance [Unknown]
  - Blood creatinine increased [Unknown]
  - Dyspnoea [Unknown]
  - Feeling abnormal [Not Recovered/Not Resolved]
